FAERS Safety Report 8787107 (Version 1)
Quarter: 2012Q4

REPORT INFORMATION
  Report Type: 
  Country: US (occurrence: US)
  Receive Date: 20120914
  Receipt Date: 20120914
  Transmission Date: 20130627
  Serious: No
  Sender: FDA-Public Use
  Company Number: US-PFIZER INC-2012226985

PATIENT
  Age: 54 Year
  Sex: Male
  Weight: 65.31 kg

DRUGS (2)
  1. CHANTIX [Suspect]
     Indication: SMOKING CESSATION THERAPY
     Dosage: UNK
     Dates: start: 20120912
  2. MIRTAZAPINE [Concomitant]
     Indication: DEPRESSION
     Dosage: UNK

REACTIONS (1)
  - Headache [Unknown]
